FAERS Safety Report 8876528 (Version 1)
Quarter: 2012Q4

REPORT INFORMATION
  Report Type: 
  Country: US (occurrence: US)
  Receive Date: 20121023
  Receipt Date: 20121023
  Transmission Date: 20130627
  Serious: Yes (Hospitalization)
  Sender: FDA-Public Use
  Company Number: US-ASTELLAS-2012US003309

PATIENT
  Age: 57 Year
  Sex: Female
  Weight: 53 kg

DRUGS (4)
  1. PROGRAF [Suspect]
     Indication: GRAFT VERSUS HOST DISEASE
     Dosage: Adjusted to maintain a trough level of 3-7 ng/ml
     Route: 065
     Dates: start: 20120116, end: 20120228
  2. RAPAMYCIN [Suspect]
     Indication: PRODUCT USED FOR UNKNOWN INDICATION
     Dosage: UNK
     Route: 065
  3. VELCADE [Suspect]
     Indication: MULTIPLE MYELOMA
     Dosage: 2.2 mg/m2, Cyclic
     Route: 042
     Dates: start: 20120116
  4. MELPHALAN [Suspect]
     Indication: MULTIPLE MYELOMA
     Dosage: 120 mg, Cyclic
     Route: 042
     Dates: start: 20120115, end: 20120116

REACTIONS (5)
  - Convulsion [Recovered/Resolved]
  - Posterior reversible encephalopathy syndrome [Recovering/Resolving]
  - Off label use [Unknown]
  - Thrombotic microangiopathy [Recovered/Resolved]
  - Renal failure acute [Recovered/Resolved]
